FAERS Safety Report 7055470-X (Version None)
Quarter: 2010Q4

REPORT INFORMATION
  Report Type: 
  Country: None (occurrence: None)
  Receive Date: 20101010
  Receipt Date: 20101010
  Transmission Date: 20110411
  Serious: Yes (Other)
  Sender: FDA-Public Use
  Company Number: None

PATIENT
  Age: 45 Year
  Sex: Male
  Weight: 53.0709 kg

DRUGS (1)
  1. BANZEL [Suspect]
     Indication: LENNOX-GASTAUT SYNDROME
     Dosage: 200MG TWICE DAILY PO
     Route: 048
     Dates: start: 20100623, end: 20100628

REACTIONS (1)
  - RASH MACULAR [None]
